FAERS Safety Report 8704748 (Version 2)
Quarter: 2012Q4

REPORT INFORMATION
  Report Type: 
  Country: CA (occurrence: CA)
  Receive Date: 20120803
  Receipt Date: 20120925
  Transmission Date: 20130627
  Serious: Yes (Hospitalization, Other)
  Sender: FDA-Public Use
  Company Number: CA-ELI_LILLY_AND_COMPANY-CA201207009015

PATIENT
  Age: 83 None
  Sex: Female
  Weight: 103 kg

DRUGS (25)
  1. FORTEO [Suspect]
     Indication: OSTEOPOROSIS
     Dosage: 20 ug, UNK
     Route: 058
     Dates: start: 20120306, end: 20120628
  2. AVAPRO [Concomitant]
  3. RYTHMOL [Concomitant]
  4. CATAPRES                                /UNK/ [Concomitant]
  5. AMLODIPINE [Concomitant]
  6. MONOCOR [Concomitant]
     Indication: ATRIAL FIBRILLATION
     Dosage: 10 mg, each morning
     Route: 048
  7. MONOCOR [Concomitant]
     Dosage: 5 mg, each evening
     Route: 048
  8. MONOCOR [Concomitant]
     Dosage: 7.5 mg, qd
  9. B12 [Concomitant]
  10. CALCIUM [Concomitant]
  11. VITAMIN D [Concomitant]
  12. TYLENOL                                 /SCH/ [Concomitant]
     Dosage: UNK, prn
  13. MACROBID [Concomitant]
     Dosage: UNK, prn
  14. IRON [Concomitant]
  15. COLCHICINE [Concomitant]
     Dosage: 0.6 mg, qd
     Route: 048
  16. COLACE [Concomitant]
     Dosage: 200 mg, each evening
  17. SYNTHROID [Concomitant]
     Dosage: 137 ug, qd
  18. ZOCOR [Concomitant]
     Dosage: 20 mg, qd
     Route: 048
  19. COUMADIN [Concomitant]
  20. SERAX [Concomitant]
     Dosage: 22.5 mg, each evening
  21. LASIX [Concomitant]
     Indication: SWELLING
     Dosage: 20 mg, prn
  22. SENOKOT [Concomitant]
     Dosage: UNK, prn
  23. VOLTAREN                           /00372301/ [Concomitant]
     Dosage: UNK, prn
  24. TOLERIN [Concomitant]
     Dosage: UNK, prn
  25. CLONIDINE [Concomitant]

REACTIONS (12)
  - Viral infection [Not Recovered/Not Resolved]
  - Pleural effusion [Not Recovered/Not Resolved]
  - Pericardial effusion [Recovering/Resolving]
  - Pericardial haemorrhage [Unknown]
  - Pleuropericarditis [Unknown]
  - Cardiac failure [Unknown]
  - Weight decreased [Recovering/Resolving]
  - Malaise [Not Recovered/Not Resolved]
  - Nasopharyngitis [Not Recovered/Not Resolved]
  - Cough [Not Recovered/Not Resolved]
  - Asthenia [Not Recovered/Not Resolved]
  - Nausea [Not Recovered/Not Resolved]
